FAERS Safety Report 7103185-1 (Version None)
Quarter: 2010Q4

REPORT INFORMATION
  Report Type: 
  Country: None (occurrence: None)
  Receive Date: 20101115
  Receipt Date: 20101104
  Transmission Date: 20110411
  Serious: Yes (Life-Threatening, Other)
  Sender: FDA-Public Use
  Company Number: JP-MERCK-1007USA00967

PATIENT
  Age: 72 Year
  Sex: Male
  Weight: 60 kg

DRUGS (6)
  1. JANUVIA [Suspect]
     Indication: DIABETES MELLITUS
     Route: 048
     Dates: start: 20100608, end: 20100612
  2. JANUVIA [Suspect]
     Indication: HYPERGLYCAEMIA
     Route: 048
     Dates: start: 20100608, end: 20100612
  3. AMLODIPINE BESYLATE [Concomitant]
     Indication: HYPERTENSION
     Route: 048
     Dates: start: 20100605, end: 20100701
  4. PEPCID [Concomitant]
     Indication: GASTRITIS
     Route: 048
     Dates: start: 20100602, end: 20100701
  5. SOLITA T-1 [Concomitant]
     Indication: FLUID REPLACEMENT
     Route: 042
     Dates: start: 20100509, end: 20100610
  6. POTASSIUM ASPARTATE [Concomitant]
     Indication: HYPOKALAEMIA
     Route: 042
     Dates: start: 20100518, end: 20100609

REACTIONS (2)
  - HYPERKALAEMIA [None]
  - LIVER DISORDER [None]
